FAERS Safety Report 4584781-2 (Version None)
Quarter: 2005Q1

REPORT INFORMATION
  Report Type: 
  Country: None (occurrence: None)
  Receive Date: 20050215
  Receipt Date: 20050201
  Transmission Date: 20050727
  Serious: Yes (Death)
  Sender: FDA-Public Use
  Company Number: 2005S1000364

PATIENT
  Age: 86 Year
  Sex: Female

DRUGS (16)
  1. CLOZAPINE [Suspect]
     Indication: DEMENTIA
     Dosage: 75MG HS, ORAL
     Route: 048
     Dates: start: 20031103, end: 20030129
  2. CLOZAPINE [Suspect]
     Indication: SCHIZOPHRENIA
     Dosage: 75MG HS, ORAL
     Route: 048
     Dates: start: 20031103, end: 20030129
  3. CLOZAPINE [Suspect]
     Indication: DEMENTIA
     Dosage: 100MG HS, ORAL
     Route: 048
     Dates: start: 20031103, end: 20030129
  4. CLOZAPINE [Suspect]
     Indication: SCHIZOPHRENIA
     Dosage: 100MG HS, ORAL
     Route: 048
     Dates: start: 20031103, end: 20030129
  5. FENTANYL [Concomitant]
  6. MORPHINE SULFATE [Concomitant]
  7. LEVOTHYROXINE [Concomitant]
  8. QUETIAPINE FUMARATE [Concomitant]
  9. ZINC [Concomitant]
  10. VITAMIN E [Concomitant]
  11. CALCITON-SALMON [Concomitant]
  12. SENNOSIDES [Concomitant]
  13. CARBIDOPA AND LEVODOPA [Concomitant]
  14. ASPRIIN (ENTERIC COATED) [Concomitant]
  15. MIRTAZAPINE [Concomitant]
  16. IBUPROFEN (PRN) [Concomitant]

REACTIONS (1)
  - CEREBROVASCULAR ACCIDENT [None]
